FAERS Safety Report 24869307 (Version 1)
Quarter: 2025Q1

REPORT INFORMATION
  Report Type: Spontaneous
  Country: CN (occurrence: CN)
  Receive Date: 20250121
  Receipt Date: 20250121
  Transmission Date: 20250408
  Serious: Yes (Hospitalization)
  Sender: NOVARTIS
  Company Number: CN-002147023-NVSC2025CN007608

PATIENT
  Age: 2 Month
  Sex: Male
  Weight: 43 kg

DRUGS (2)
  1. OXCARBAZEPINE [Suspect]
     Active Substance: OXCARBAZEPINE
     Indication: Epilepsy
     Dosage: 0.3 ML, BID
     Route: 048
     Dates: start: 20241231, end: 20250104
  2. LEVETIRACETAM [Concomitant]
     Active Substance: LEVETIRACETAM
     Indication: Epilepsy
     Dosage: 1 ML, BID (Q12H)
     Route: 048
     Dates: start: 20241216, end: 20250106

REACTIONS (3)
  - Rash erythematous [Recovered/Resolved]
  - Seizure [Unknown]
  - Pruritus [Unknown]

NARRATIVE: CASE EVENT DATE: 20250102
